FAERS Safety Report 7625010-2 (Version None)
Quarter: 2011Q3

REPORT INFORMATION
  Report Type: 
  Country: None (occurrence: None)
  Receive Date: 20110721
  Receipt Date: 20110715
  Transmission Date: 20111222
  Serious: Yes (Death, Hospitalization)
  Sender: FDA-Public Use
  Company Number: US-BIOGENIDEC-2011BI026572

PATIENT
  Age: 62 Year
  Sex: Female

DRUGS (5)
  1. LYRICA [Concomitant]
  2. AVONEX [Suspect]
     Route: 030
     Dates: start: 20060101
  3. CELEXA [Concomitant]
     Indication: DEPRESSION
  4. AVONEX [Suspect]
     Route: 030
     Dates: start: 20060131
  5. AVONEX [Suspect]
     Indication: MULTIPLE SCLEROSIS
     Route: 030
     Dates: start: 20000101

REACTIONS (4)
  - SYNCOPE [None]
  - MULTIPLE SCLEROSIS RELAPSE [None]
  - CEREBROVASCULAR ACCIDENT [None]
  - COLITIS ULCERATIVE [None]
